FAERS Safety Report 7783314-7 (Version None)
Quarter: 2011Q3

REPORT INFORMATION
  Report Type: 
  Country: None (occurrence: None)
  Receive Date: 20110928
  Receipt Date: 20110920
  Transmission Date: 20111222
  Serious: Yes (Hospitalization, Disabling)
  Sender: FDA-Public Use
  Company Number: US-AMGEN-USASP2011048453

PATIENT
  Age: 64 Year
  Sex: Female

DRUGS (2)
  1. ENBREL [Suspect]
     Indication: OSTEOARTHRITIS
  2. ENBREL [Suspect]
     Indication: RHEUMATOID ARTHRITIS
     Dosage: 50 MG, QWK
     Dates: start: 20100413

REACTIONS (6)
  - OSTEOARTHRITIS [None]
  - PAIN IN EXTREMITY [None]
  - ARTHRALGIA [None]
  - RHEUMATOID ARTHRITIS [None]
  - INJECTION SITE DISCOMFORT [None]
  - JOINT DESTRUCTION [None]
